FAERS Safety Report 7507708-X (Version None)
Quarter: 2011Q2

REPORT INFORMATION
  Report Type: 
  Country: None (occurrence: None)
  Receive Date: 20110527
  Receipt Date: 20110518
  Transmission Date: 20111010
  Serious: No
  Sender: FDA-Public Use
  Company Number: US-BIOGENIDEC-2010BI027915

PATIENT
  Sex: Female

DRUGS (7)
  1. CIPRO [Concomitant]
  2. TYSABRI [Suspect]
     Route: 042
  3. HYDROCODONE BITARTRATE [Concomitant]
     Indication: PAIN IN EXTREMITY
     Dates: start: 20070101
  4. TYSABRI [Suspect]
     Indication: MULTIPLE SCLEROSIS
     Route: 042
     Dates: start: 20100415, end: 20100701
  5. PROVIGIL [Concomitant]
     Indication: FATIGUE
  6. HYDROCODONE BITARTRATE [Concomitant]
     Indication: NERVE COMPRESSION
     Dates: start: 20070101
  7. HYDROCODONE BITARTRATE [Concomitant]
     Indication: BACK PAIN
     Dates: start: 20070101

REACTIONS (10)
  - FATIGUE [None]
  - HEADACHE [None]
  - DRUG HYPERSENSITIVITY [None]
  - EAR INFECTION [None]
  - MIDDLE EAR EFFUSION [None]
  - SINUS HEADACHE [None]
  - ASTHENIA [None]
  - BACK PAIN [None]
  - SINUSITIS [None]
  - EAR PAIN [None]
